FAERS Safety Report 23654034 (Version 1)
Quarter: 2024Q1

REPORT INFORMATION
  Report Type: Spontaneous
  Country: ES (occurrence: ES)
  Receive Date: 20240320
  Receipt Date: 20240320
  Transmission Date: 20240410
  Serious: Yes (Hospitalization, Other)
  Sender: FDA-Public Use
  Company Number: ES-FreseniusKabi-FK202404175

PATIENT
  Age: 36 Year
  Sex: Female

DRUGS (10)
  1. SALINE [Suspect]
     Active Substance: SODIUM CHLORIDE
     Indication: Hysteroscopy
  2. SALINE [Suspect]
     Active Substance: SODIUM CHLORIDE
     Indication: Irrigation therapy
  3. LIDOCAINE [Concomitant]
     Active Substance: LIDOCAINE
  4. FENTANYL [Concomitant]
     Active Substance: FENTANYL\FENTANYL CITRATE
  5. PROPOFOL [Concomitant]
     Active Substance: PROPOFOL
  6. ONDANSETRON [Concomitant]
     Active Substance: ONDANSETRON
  7. DEXAMETHASONE [Concomitant]
     Active Substance: DEXAMETHASONE
  8. ACETAMINOPHEN [Concomitant]
     Active Substance: ACETAMINOPHEN
  9. DEXKETOPROFEN [Concomitant]
     Active Substance: DEXKETOPROFEN
  10. PHENYLEPHRINE [Concomitant]
     Active Substance: PHENYLEPHRINE HYDROCHLORIDE

REACTIONS (2)
  - Venous intravasation [Recovering/Resolving]
  - Acute pulmonary oedema [Recovering/Resolving]
